FAERS Safety Report 12197314 (Version 1)
Quarter: 2016Q1

REPORT INFORMATION
  Report Type: Spontaneous
  Country: US (occurrence: US)
  Receive Date: 20160322
  Receipt Date: 20160322
  Transmission Date: 20160526
  Serious: Yes (Other)
  Sender: FDA-Public Use
  Company Number: US-STRIDES ARCOLAB LIMITED-2016SP001688

PATIENT

DRUGS (4)
  1. MYCOPHENOLATE MOFETIL. [Suspect]
     Active Substance: MYCOPHENOLATE MOFETIL
     Indication: THROMBOCYTOPENIA
     Dosage: UNK
  2. VINCRISTINE [Suspect]
     Active Substance: VINCRISTINE
     Indication: THROMBOCYTOPENIA
     Dosage: UNK
  3. IMMUNOGLOBULIN                     /07494701/ [Suspect]
     Active Substance: HUMAN IMMUNOGLOBULIN G
     Indication: THROMBOCYTOPENIA
     Dosage: UNK
  4. RITUXIMAB [Suspect]
     Active Substance: RITUXIMAB
     Indication: THROMBOCYTOPENIA
     Dosage: UNK

REACTIONS (4)
  - Autoimmune lymphoproliferative syndrome [Unknown]
  - Symptom masked [Unknown]
  - Lymphadenopathy mediastinal [Recovered/Resolved]
  - Splenomegaly [Recovered/Resolved]
